FAERS Safety Report 16059517 (Version 2)
Quarter: 2019Q2

REPORT INFORMATION
  Report Type: Report from Study
  Country: US (occurrence: US)
  Receive Date: 20190311
  Receipt Date: 20190423
  Transmission Date: 20190711
  Serious: Yes (Death)
  Sender: FDA-Public Use
  Company Number: US-ACTELION-A-NJ2018-168955

PATIENT
  Age: 65 Year
  Sex: Female

DRUGS (1)
  1. OPSUMIT [Suspect]
     Active Substance: MACITENTAN
     Indication: PULMONARY ARTERIAL HYPERTENSION
     Dosage: UNK
     Route: 048
     Dates: start: 20170729, end: 20190320

REACTIONS (2)
  - Pneumonia [Unknown]
  - Rectal cancer [Fatal]

NARRATIVE: CASE EVENT DATE: 20180127
